FAERS Safety Report 9000534 (Version 1)
Quarter: 2013Q1

REPORT INFORMATION
  Report Type: Spontaneous
  Country: US (occurrence: None)
  Receive Date: 20130102
  Receipt Date: 20130102
  Transmission Date: 20140127
  Serious: Yes (Hospitalization)
  Sender: FDA-Public Use
  Company Number: None

PATIENT
  Sex: Male
  Weight: 62.2 kg

DRUGS (8)
  1. CETUXIMAB [Suspect]
  2. FENTANYL [Concomitant]
  3. HYDROMORPHONE [Concomitant]
  4. INSULIN ASPART [Concomitant]
  5. INSULIN GLARGINE [Concomitant]
  6. PROMETHAZINE [Concomitant]
  7. LIDOCAINE [Concomitant]
  8. LORAZEPAM [Concomitant]

REACTIONS (8)
  - Dehydration [None]
  - Fatigue [None]
  - Nausea [None]
  - Vomiting [None]
  - Neck pain [None]
  - Stomatitis [None]
  - Pyrexia [None]
  - Pain [None]
